FAERS Safety Report 21082099 (Version 1)
Quarter: 2022Q3

REPORT INFORMATION
  Report Type: Spontaneous
  Country: US (occurrence: None)
  Receive Date: 20220714
  Receipt Date: 20220714
  Transmission Date: 20221026
  Serious: Yes (Hospitalization)
  Sender: FDA-Public Use
  Company Number: None

PATIENT
  Age: 58 Year
  Sex: Male

DRUGS (1)
  1. NIRMATRELVIR\RITONAVIR [Suspect]
     Active Substance: NIRMATRELVIR\RITONAVIR
     Indication: COVID-19
     Dosage: OTHER QUANTITY : 300/100 MG;?FREQUENCY : TWICE A DAY;?
     Route: 048
     Dates: start: 20220625, end: 20220630

REACTIONS (6)
  - Cough [None]
  - Pain [None]
  - Headache [None]
  - Asthenia [None]
  - Decubitus ulcer [None]
  - Pneumonia streptococcal [None]

NARRATIVE: CASE EVENT DATE: 20220629
